FAERS Safety Report 8815875 (Version 1)
Quarter: 2012Q4

REPORT INFORMATION
  Report Type: Report from Study
  Country: BR (occurrence: BR)
  Receive Date: 20120928
  Receipt Date: 20120928
  Transmission Date: 20130627
  Serious: Yes (Hospitalization)
  Sender: FDA-Public Use
  Company Number: BR-ROCHE-1131778

PATIENT
  Sex: Female
  Weight: 58 kg

DRUGS (7)
  1. MABTHERA [Suspect]
     Indication: RHEUMATOID ARTHRITIS
     Route: 042
     Dates: start: 20100701
  2. MABTHERA [Suspect]
     Route: 042
     Dates: start: 20100801
  3. IMURAN [Concomitant]
     Route: 065
  4. METICORTEN [Concomitant]
     Route: 065
  5. LYRICA [Concomitant]
     Route: 065
  6. RIVOTRIL [Concomitant]
     Route: 065
  7. AZATHIOPRINE [Concomitant]
     Route: 065

REACTIONS (6)
  - Thrombocytopenia [Unknown]
  - Haemoglobin decreased [Unknown]
  - Haematocrit decreased [Unknown]
  - Fatigue [Not Recovered/Not Resolved]
  - Dyspnoea [Not Recovered/Not Resolved]
  - Diabetes mellitus [Unknown]
